FAERS Safety Report 24124527 (Version 1)
Quarter: 2024Q3

REPORT INFORMATION
  Report Type: Report from Study
  Country: US (occurrence: None)
  Receive Date: 20240723
  Receipt Date: 20240723
  Transmission Date: 20241016
  Serious: Yes (Hospitalization)
  Sender: ASTRAZENECA
  Company Number: 2020SE25291

PATIENT
  Sex: Female

DRUGS (6)
  1. FASENRA [Suspect]
     Active Substance: BENRALIZUMAB
     Dosage: 30.0MG UNKNOWN
     Route: 058
  2. PREDNISONE [Concomitant]
     Active Substance: PREDNISONE
  3. LANTUS [Concomitant]
     Active Substance: INSULIN GLARGINE
  4. ADVAIR HFA [Concomitant]
     Active Substance: FLUTICASONE PROPIONATE\SALMETEROL XINAFOATE
     Dosage: 230/21 MG
  5. TAPAZOLE [Concomitant]
     Active Substance: METHIMAZOLE
  6. IPRATROPIUM [Concomitant]
     Active Substance: IPRATROPIUM

REACTIONS (3)
  - Pneumonia [Unknown]
  - Rhinitis allergic [Unknown]
  - Sneezing [Unknown]
